FAERS Safety Report 9029175 (Version 1)
Quarter: 2013Q1

REPORT INFORMATION
  Report Type: Spontaneous
  Country: JP (occurrence: JP)
  Receive Date: 20130125
  Receipt Date: 20130125
  Transmission Date: 20140127
  Serious: Yes (Death, Hospitalization)
  Sender: FDA-Public Use
  Company Number: JP-009507513-1212JPN007436

PATIENT
  Age: 31 Year
  Sex: Female

DRUGS (2)
  1. MARVELON 28 [Suspect]
     Dosage: 1 DF, QD
     Route: 048
     Dates: start: 20110129, end: 20121211
  2. [THERAPY UNSPECIFIED] [Concomitant]
     Dosage: DAILY DOSE UNKNOWN
     Route: 065

REACTIONS (7)
  - Pulmonary embolism [Fatal]
  - Dizziness postural [None]
  - Cold sweat [None]
  - Pallor [None]
  - Asthenia [None]
  - Cyanosis [None]
  - Shock [None]
